FAERS Safety Report 7769229-9 (Version None)
Quarter: 2011Q3

REPORT INFORMATION
  Report Type: 
  Country: None (occurrence: None)
  Receive Date: 20110922
  Receipt Date: 20110914
  Transmission Date: 20111222
  Serious: Yes (Hospitalization)
  Sender: FDA-Public Use
  Company Number: JP-ROCHE-790963

PATIENT
  Sex: Female
  Weight: 38.4 kg

DRUGS (19)
  1. PREDNISOLONE [Concomitant]
     Route: 048
     Dates: end: 20100401
  2. SULFAMETHOXAZOLE [Concomitant]
     Route: 048
  3. TOCILIZUMAB [Suspect]
     Route: 041
     Dates: start: 20110525
  4. METHOTREXATE [Suspect]
     Route: 048
     Dates: start: 20101222
  5. NAPROXEN [Suspect]
     Indication: JUVENILE ARTHRITIS
     Route: 048
  6. TOCILIZUMAB [Suspect]
     Route: 041
     Dates: start: 20110216, end: 20110415
  7. PREDNISOLONE [Concomitant]
     Route: 048
     Dates: start: 20101027
  8. ALFAROL [Concomitant]
     Route: 048
  9. FOLIC ACID [Concomitant]
     Route: 048
  10. TOCILIZUMAB [Suspect]
     Indication: JUVENILE ARTHRITIS
     Route: 041
     Dates: start: 20100325, end: 20100325
  11. METHOTREXATE [Suspect]
     Indication: JUVENILE ARTHRITIS
     Route: 048
     Dates: start: 20090422, end: 20101221
  12. TOCILIZUMAB [Suspect]
     Route: 041
     Dates: start: 20100402, end: 20110202
  13. ALFAROL [Concomitant]
     Route: 048
  14. ITRACONAZOLE [Concomitant]
     Route: 048
     Dates: end: 20100818
  15. PREDNISOLONE [Concomitant]
     Route: 048
     Dates: start: 20100410, end: 20100514
  16. PREDNISOLONE [Concomitant]
     Route: 048
     Dates: start: 20100610, end: 20100831
  17. PREDNISOLONE [Concomitant]
     Route: 048
     Dates: start: 20100901, end: 20101026
  18. AZULFIDINE [Concomitant]
     Route: 048
     Dates: start: 20050601
  19. PREDNISOLONE [Concomitant]
     Route: 048
     Dates: start: 20100515, end: 20100609

REACTIONS (3)
  - CALCULUS URINARY [None]
  - GASTROENTERITIS [None]
  - HEPATIC FUNCTION ABNORMAL [None]
